FAERS Safety Report 16748212 (Version 1)
Quarter: 2019Q3

REPORT INFORMATION
  Report Type: Report from Study
  Country: None (occurrence: US)
  Receive Date: 20190827
  Receipt Date: 20190827
  Transmission Date: 20191005
  Serious: Yes (Hospitalization, Other)
  Sender: FDA-Public Use
  Company Number: US-ABBVIE-19K-163-2681643-00

PATIENT
  Sex: Female
  Weight: 78.54 kg

DRUGS (4)
  1. HUMIRA [Suspect]
     Active Substance: ADALIMUMAB
     Indication: UVEITIS
     Route: 058
     Dates: start: 20181212, end: 20181212
  2. HUMIRA [Suspect]
     Active Substance: ADALIMUMAB
     Route: 058
     Dates: start: 20181219, end: 20190126
  3. METFORMIN [Concomitant]
     Active Substance: METFORMIN HYDROCHLORIDE
     Indication: PRODUCT USED FOR UNKNOWN INDICATION
  4. LOSARTAN. [Concomitant]
     Active Substance: LOSARTAN
     Indication: PRODUCT USED FOR UNKNOWN INDICATION

REACTIONS (12)
  - Pulmonary mass [Unknown]
  - Tuberculosis [Recovering/Resolving]
  - Pneumonia [Unknown]
  - Sarcoidosis [Unknown]
  - Arthralgia [Unknown]
  - Pyrexia [Unknown]
  - Chest X-ray abnormal [Unknown]
  - Lymphadenopathy mediastinal [Unknown]
  - Feeling abnormal [Unknown]
  - Pneumonitis [Unknown]
  - Chills [Unknown]
  - Night sweats [Unknown]

NARRATIVE: CASE EVENT DATE: 2019
